FAERS Safety Report 17638146 (Version 1)
Quarter: 2020Q2

REPORT INFORMATION
  Report Type: Spontaneous
  Country: CN (occurrence: CN)
  Receive Date: 20200407
  Receipt Date: 20200407
  Transmission Date: 20200713
  Serious: Yes (Other)
  Sender: FDA-Public Use
  Company Number: CN-BAYER-2020-051820

PATIENT
  Age: 56 Year
  Sex: Male
  Weight: 60 kg

DRUGS (3)
  1. IOPROMIDE. [Suspect]
     Active Substance: IOPROMIDE
     Indication: ANGIOPLASTY
  2. IOPROMIDE. [Suspect]
     Active Substance: IOPROMIDE
     Indication: STENT PLACEMENT
  3. IOPROMIDE. [Suspect]
     Active Substance: IOPROMIDE
     Indication: ANGIOGRAM
     Dosage: 50 ML, ONCE
     Route: 042
     Dates: start: 20200323, end: 20200323

REACTIONS (11)
  - Urethral injury [None]
  - Acute kidney injury [Recovered/Resolved with Sequelae]
  - Pain [None]
  - Nephropathy toxic [Recovered/Resolved with Sequelae]
  - Liver injury [Recovered/Resolved with Sequelae]
  - Oliguria [None]
  - Nausea [None]
  - Swelling [None]
  - Anuria [None]
  - Feeling hot [None]
  - Haematuria [None]

NARRATIVE: CASE EVENT DATE: 20200323
